FAERS Safety Report 13963764 (Version 7)
Quarter: 2018Q2

REPORT INFORMATION
  Report Type: Report from Study
  Country: DE (occurrence: DE)
  Receive Date: 20170913
  Receipt Date: 20180627
  Transmission Date: 20180711
  Serious: Yes (Hospitalization)
  Sender: FDA-Public Use
  Company Number: DE-ROCHE-1991304

PATIENT
  Age: 74 Year
  Sex: Male
  Weight: 64 kg

DRUGS (8)
  1. FOLINIC ACID [Suspect]
     Active Substance: LEUCOVORIN
     Indication: COLORECTAL CANCER METASTATIC
     Dosage: ON 23/AUG/2017, THE PATIENT RECEIVED MOST RECENT DOSE OF LEUCOVORIN AT 660 MG.
     Route: 042
     Dates: start: 20160426
  2. LOPERAMID [Concomitant]
     Active Substance: LOPERAMIDE
     Indication: DIARRHOEA
     Route: 065
  3. BEVACIZUMAB. [Suspect]
     Active Substance: BEVACIZUMAB
     Indication: COLORECTAL CANCER METASTATIC
     Dosage: ON 23/AUG/2017 AT 11:10, THE PATIENT RECEIVED MOST RECENT DOSE OF BEVACIZUMAB AT 275 MG.
     Route: 042
     Dates: start: 20151221
  4. RAMIPRIL. [Concomitant]
     Active Substance: RAMIPRIL
     Route: 065
  5. 5-FLUOROURACIL [Suspect]
     Active Substance: FLUOROURACIL
     Indication: COLORECTAL CANCER METASTATIC
     Dosage: 1600-2400 MG/M^2 VIA 46-HOUR IV INFUSION?ON 23/AUG/2017 TO 25/AUG/2017, THE PATIENT RECEIVED MOST RE
     Route: 042
     Dates: start: 20160426
  6. ATENOLOL. [Concomitant]
     Active Substance: ATENOLOL
     Route: 065
  7. HUMINSULIN NORMAL [Concomitant]
     Dosage: INJ. SUSP./SOL., DOS ACC. TO BLOOD GLUC.
     Route: 065
  8. ATEZOLIZUMAB. [Suspect]
     Active Substance: ATEZOLIZUMAB
     Indication: COLORECTAL CANCER METASTATIC
     Dosage: ON 23/AUG/2017 AT 10:40, THE PATIENT RECEIVED MOST RECENT DOSE OF ATEZOLIZUMAB AT 800 MG.
     Route: 042
     Dates: start: 20160426

REACTIONS (2)
  - Tracheal haemorrhage [Recovered/Resolved]
  - Tracheitis [Recovered/Resolved]

NARRATIVE: CASE EVENT DATE: 20170906
